FAERS Safety Report 8866064 (Version 3)
Quarter: 2013Q1

REPORT INFORMATION
  Report Type: Report from Study
  Country: JP (occurrence: JP)
  Receive Date: 20121025
  Receipt Date: 20130211
  Transmission Date: 20140127
  Serious: Yes (Other)
  Sender: FDA-Public Use
  Company Number: JP-JNJFOC-20121012469

PATIENT
  Age: 61 Year
  Sex: Male
  Weight: 74 kg

DRUGS (14)
  1. GOLIMUMAB [Suspect]
     Indication: RHEUMATOID ARTHRITIS
     Route: 058
     Dates: start: 20120523, end: 20120622
  2. METHOTREXATE [Suspect]
     Indication: RHEUMATOID ARTHRITIS
  3. BUCILLAMINE [Concomitant]
     Indication: RHEUMATOID ARTHRITIS
     Route: 048
  4. TAKEPRON [Concomitant]
     Indication: PROPHYLAXIS
     Route: 048
  5. LENDORMIN [Concomitant]
     Indication: INSOMNIA
     Route: 048
  6. LIMAPROST [Concomitant]
     Indication: LUMBAR SPINAL STENOSIS
     Route: 048
  7. FUROSEMIDE [Concomitant]
     Indication: HYPERTENSION
     Route: 048
  8. ALDACTONE A [Concomitant]
     Indication: HYPERTENSION
     Route: 048
  9. JANUVIA [Concomitant]
     Indication: DIABETES MELLITUS
     Route: 048
  10. ACTOS [Concomitant]
     Indication: DIABETES MELLITUS
     Route: 048
  11. NIFEDIPINE [Concomitant]
     Indication: HYPERTENSION
     Route: 048
  12. ALLOZYM [Concomitant]
     Indication: HYPERTENSION
     Route: 048
  13. ISCOTIN [Concomitant]
     Indication: PROPHYLAXIS
     Route: 048
  14. PYRIDOXAL PHOSPHATE [Concomitant]
     Indication: PROPHYLAXIS
     Route: 048

REACTIONS (1)
  - Rash generalised [Recovered/Resolved]
